FAERS Safety Report 6600496-0 (Version None)
Quarter: 2010Q1

REPORT INFORMATION
  Report Type: 
  Country: None (occurrence: None)
  Receive Date: 20100223
  Receipt Date: 20100223
  Transmission Date: 20100710
  Serious: Yes (Other)
  Sender: FDA-Public Use
  Company Number: None

PATIENT
  Sex: Female
  Weight: 63.5036 kg

DRUGS (1)
  1. JOLESSA .15MG/.03MG BARR [Suspect]
     Indication: POSTPARTUM DEPRESSION
     Dosage: 1 ACTIVE PILL PER DAY PO
     Route: 048
     Dates: start: 20091126, end: 20100218

REACTIONS (11)
  - ANXIETY [None]
  - BACK PAIN [None]
  - CHEST DISCOMFORT [None]
  - DIZZINESS [None]
  - DYSPNOEA [None]
  - EMOTIONAL DISORDER [None]
  - FATIGUE [None]
  - FEAR [None]
  - IRRITABILITY [None]
  - METRORRHAGIA [None]
  - VERTIGO [None]
